FAERS Safety Report 13338904 (Version 8)
Quarter: 2020Q4

REPORT INFORMATION
  Report Type: Spontaneous
  Country: US (occurrence: US)
  Receive Date: 20170315
  Receipt Date: 20201007
  Transmission Date: 20210113
  Serious: Yes (Congenital Anomaly, Other)
  Sender: FDA-Public Use
  Company Number: PHEH2017US007365

PATIENT
  Age: 0 Day
  Sex: Male

DRUGS (3)
  1. ZOFRAN [Suspect]
     Active Substance: ONDANSETRON HYDROCHLORIDE
     Indication: FOETAL EXPOSURE DURING PREGNANCY
     Route: 064
  2. ONDANSETRON [Suspect]
     Active Substance: ONDANSETRON
     Indication: FOETAL EXPOSURE DURING PREGNANCY
     Dosage: MOTHER^S DOSE: 4 MG, Q6H, PRN
     Route: 064
  3. ONDANSETRON [Suspect]
     Active Substance: ONDANSETRON
     Indication: FOETAL EXPOSURE DURING PREGNANCY
     Dosage: MOTHER DOSE: 04 MG, Q6H
     Route: 064

REACTIONS (52)
  - Ventricular septal defect [Unknown]
  - Subvalvular aortic stenosis [Unknown]
  - Aorta hypoplasia [Unknown]
  - Left-to-right cardiac shunt [Unknown]
  - Coronary artery disease [Unknown]
  - Cardiomegaly [Unknown]
  - Pulmonary valve disease [Unknown]
  - Supraventricular tachycardia [Unknown]
  - Epilepsy [Unknown]
  - Foetal exposure during pregnancy [Unknown]
  - Diastasis recti abdominis [Unknown]
  - Patent ductus arteriosus [Unknown]
  - Heart disease congenital [Unknown]
  - Language disorder [Unknown]
  - Fall [Unknown]
  - Hypertrophic cardiomyopathy [Unknown]
  - Congenital tricuspid valve stenosis [Unknown]
  - Congenital pulmonary hypertension [Unknown]
  - Left ventricular hypertrophy [Unknown]
  - Gastrooesophageal reflux disease [Unknown]
  - Cardiac murmur [Unknown]
  - Abdominal hernia [Unknown]
  - Fatigue [Unknown]
  - Atrial septal defect [Unknown]
  - Intestinal atresia [Unknown]
  - Congenital mitral valve incompetence [Unknown]
  - Jaundice neonatal [Unknown]
  - Right ventricular hypertrophy [Unknown]
  - Vocal cord paresis [Unknown]
  - Injury [Unknown]
  - Atelectasis [Unknown]
  - Nasopharyngitis [Unknown]
  - Hypoplastic right heart syndrome [Unknown]
  - Tricuspid valve disease [Unknown]
  - Interstitial lung disease [Unknown]
  - Incisional hernia [Unknown]
  - Umbilical hernia [Unknown]
  - Univentricular heart [Unknown]
  - Coarctation of the aorta [Unknown]
  - Laevocardia [Unknown]
  - Neonatal respiratory distress syndrome [Unknown]
  - Left atrial enlargement [Unknown]
  - Premature baby [Unknown]
  - Pericardial effusion [Unknown]
  - Seizure [Unknown]
  - Speech disorder [Unknown]
  - Tricuspid valve stenosis [Unknown]
  - Congenital aortic stenosis [Unknown]
  - Aortic valve disease [Unknown]
  - Mitral valve incompetence [Unknown]
  - Neonatal hyponatraemia [Unknown]
  - Pulmonary oedema [Unknown]

NARRATIVE: CASE EVENT DATE: 20140518
